FAERS Safety Report 8216574 (Version 2)
Quarter: 2013Q1

REPORT INFORMATION
  Report Type: Spontaneous
  Country: US (occurrence: US)
  Receive Date: 20111031
  Receipt Date: 20130304
  Transmission Date: 20140127
  Serious: Yes (Other)
  Sender: FDA-Public Use
  Company Number: US-ASTRAZENECA-2011SE63569

PATIENT
  Age: 72 Year
  Sex: Female
  Weight: 68.9 kg

DRUGS (7)
  1. ARIMIDEX [Suspect]
     Indication: BREAST CANCER
     Route: 048
     Dates: start: 201102, end: 201108
  2. OMEPRAZOLE [Concomitant]
     Indication: GASTROOESOPHAGEAL REFLUX DISEASE
  3. SIMVASTATIN [Concomitant]
     Indication: BLOOD CHOLESTEROL ABNORMAL
  4. XANAX [Concomitant]
  5. ZOLOS [Concomitant]
  6. BABY ASPIRIN [Concomitant]
  7. TRIAMTERENE/HCTZ [Concomitant]
     Dosage: 37.5/25

REACTIONS (20)
  - Meniscus injury [Unknown]
  - Memory impairment [Not Recovered/Not Resolved]
  - Balance disorder [Not Recovered/Not Resolved]
  - Fall [Unknown]
  - Malaise [Unknown]
  - Abdominal distension [Recovered/Resolved]
  - Hearing impaired [Unknown]
  - Gait disturbance [Unknown]
  - Aphasia [Unknown]
  - Dementia [Unknown]
  - Nail disorder [Unknown]
  - Paraesthesia [Unknown]
  - Fine motor delay [Unknown]
  - Hallucination, auditory [Recovered/Resolved]
  - Dysgeusia [Unknown]
  - Hypokinesia [Not Recovered/Not Resolved]
  - Local swelling [Not Recovered/Not Resolved]
  - Joint swelling [Not Recovered/Not Resolved]
  - Joint swelling [Not Recovered/Not Resolved]
  - Joint swelling [Unknown]
